FAERS Safety Report 24278186 (Version 2)
Quarter: 2024Q3

REPORT INFORMATION
  Report Type: Spontaneous
  Country: GB (occurrence: GB)
  Receive Date: 20240903
  Receipt Date: 20240906
  Transmission Date: 20241017
  Serious: Yes (Death, Hospitalization, Other)
  Sender: DAIICHI
  Company Number: GB-DSJP-DSE-2024-143046

PATIENT
  Age: 83 Year
  Sex: Female

DRUGS (1)
  1. EDOXABAN [Suspect]
     Active Substance: EDOXABAN
     Indication: Atrial fibrillation
     Dosage: 60 MG, QD
     Route: 048
     Dates: start: 20230426

REACTIONS (5)
  - Cerebral haemorrhage [Fatal]
  - Weight decreased [Unknown]
  - Fall [Unknown]
  - Epistaxis [Recovered/Resolved]
  - Incorrect dose administered [Not Recovered/Not Resolved]

NARRATIVE: CASE EVENT DATE: 20230701
